FAERS Safety Report 9199331 (Version 1)
Quarter: 2013Q1

REPORT INFORMATION
  Report Type: Spontaneous
  Country: US (occurrence: US)
  Receive Date: 20130329
  Receipt Date: 20130329
  Transmission Date: 20140127
  Serious: No
  Sender: FDA-Public Use
  Company Number: US-009507513-1303USA011312

PATIENT
  Age: 38 Year
  Sex: Female
  Weight: 90.7 kg

DRUGS (2)
  1. NEXPLANON [Suspect]
     Indication: CONTRACEPTION
     Dosage: 1 IMPNAT EVERY 3 YEARS
     Route: 059
     Dates: start: 20120926
  2. SYNTHROID [Concomitant]

REACTIONS (1)
  - Menstruation irregular [Unknown]
